FAERS Safety Report 11208892 (Version 1)
Quarter: 2015Q2

REPORT INFORMATION
  Report Type: Spontaneous
  Country: US (occurrence: None)
  Receive Date: 20150619
  Receipt Date: 20150619
  Transmission Date: 20150821
  Serious: No
  Sender: FDA-Public Use
  Company Number: None

PATIENT
  Age: 55 Year
  Sex: Male

DRUGS (12)
  1. TRIMIX [Suspect]
     Active Substance: ALPROSTADIL\PAPAVERINE\PHENTOLAMINE
     Indication: PROSTATE CANCER
     Route: 042
     Dates: start: 201009, end: 201410
  2. ZOLPIDEM ER [Concomitant]
     Active Substance: ZOLPIDEM\ZOLPIDEM TARTRATE
  3. CYCLOBENZAPRINE [Concomitant]
     Active Substance: CYCLOBENZAPRINE
  4. QUETIAPRINE [Concomitant]
  5. FLUTICASONE [Concomitant]
     Active Substance: FLUTICASONE\FLUTICASONE PROPIONATE
  6. ATORASTATIN [Concomitant]
  7. TRIMIX [Suspect]
     Active Substance: ALPROSTADIL\PAPAVERINE\PHENTOLAMINE
     Indication: ERECTILE DYSFUNCTION
     Route: 042
     Dates: start: 201009, end: 201410
  8. TRIMIX [Suspect]
     Active Substance: ALPROSTADIL\PAPAVERINE\PHENTOLAMINE
     Indication: PROSTATECTOMY
     Route: 042
     Dates: start: 201009, end: 201410
  9. DICLOFENAC [Concomitant]
     Active Substance: DICLOFENAC
  10. LEVOCETIRIZINE [Concomitant]
     Active Substance: LEVOCETIRIZINE
  11. METAPROLOL TARTRATE [Concomitant]
     Active Substance: METOPROLOL TARTRATE
  12. MULTIPLE VITAMIN + MINERAL [Concomitant]

REACTIONS (3)
  - Erection increased [None]
  - Penis injury [None]
  - Fibrosis [None]

NARRATIVE: CASE EVENT DATE: 201410
